FAERS Safety Report 26181684 (Version 1)
Quarter: 2025Q4

REPORT INFORMATION
  Report Type: Spontaneous
  Country: GB (occurrence: GB)
  Receive Date: 20251221
  Receipt Date: 20251221
  Transmission Date: 20260118
  Serious: Yes (Death, Life-Threatening, Hospitalization, Disabling)
  Sender: MERCK SHARP & DOHME LLC
  Company Number: GB-009507513-2341726

PATIENT
  Age: 58 Year
  Sex: Female
  Weight: 130 kg

DRUGS (1)
  1. PEMBROLIZUMAB [Suspect]
     Active Substance: PEMBROLIZUMAB
     Indication: Renal cell carcinoma
     Route: 042
     Dates: start: 20250123, end: 20250529

REACTIONS (2)
  - Pulmonary embolism [Fatal]
  - Chronic myocarditis [Recovering/Resolving]

NARRATIVE: CASE EVENT DATE: 20250601
